FAERS Safety Report 10533352 (Version 3)
Quarter: 2015Q1

REPORT INFORMATION
  Report Type: Spontaneous
  Country: US (occurrence: US)
  Receive Date: 20141022
  Receipt Date: 20150115
  Transmission Date: 20150720
  Serious: Yes (Hospitalization)
  Sender: FDA-Public Use
  Company Number: US-SA-2014SA142964

PATIENT
  Age: 52 Year
  Sex: Female
  Weight: 129.95 kg

DRUGS (30)
  1. ACCOLATE [Concomitant]
     Active Substance: ZAFIRLUKAST
  2. CLOPIDOGREL BISULFATE. [Concomitant]
     Active Substance: CLOPIDOGREL BISULFATE
  3. MORPHINE SULFATE. [Concomitant]
     Active Substance: MORPHINE SULFATE
  4. TOPAMAX [Concomitant]
     Active Substance: TOPIRAMATE
  5. TOPIRAMATE. [Concomitant]
     Active Substance: TOPIRAMATE
  6. TRIAMTERENE. [Concomitant]
     Active Substance: TRIAMTERENE
  7. FABRAZYME [Suspect]
     Active Substance: AGALSIDASE BETA
     Indication: FABRY^S DISEASE
     Route: 041
  8. CHLORHEXIDINE GLUCONATE. [Concomitant]
     Active Substance: CHLORHEXIDINE GLUCONATE
  9. CYCLOBENZAPRINE HYDROCHLORIDE. [Concomitant]
     Active Substance: CYCLOBENZAPRINE HYDROCHLORIDE
  10. MACROGOL [Concomitant]
     Active Substance: POLYETHYLENE GLYCOLS
  11. ALPRAZOLAM. [Concomitant]
     Active Substance: ALPRAZOLAM
  12. FABRAZYME [Suspect]
     Active Substance: AGALSIDASE BETA
     Indication: FABRY^S DISEASE
     Route: 041
     Dates: start: 20140124, end: 20141008
  13. LISINOPRIL. [Concomitant]
     Active Substance: LISINOPRIL
  14. METOPROLOL TARTRATE. [Concomitant]
     Active Substance: METOPROLOL TARTRATE
  15. HEPARIN SODIUM. [Concomitant]
     Active Substance: HEPARIN SODIUM
  16. ALLOPURINOL. [Concomitant]
     Active Substance: ALLOPURINOL
  17. CYCLOBENZAPRINE [Concomitant]
     Active Substance: CYCLOBENZAPRINE
  18. FLUTICASONE PROPIONATE. [Concomitant]
     Active Substance: FLUTICASONE PROPIONATE
  19. LEVOTHYROXINE SODIUM. [Concomitant]
     Active Substance: LEVOTHYROXINE SODIUM
  20. SYMBICORT [Concomitant]
     Active Substance: BUDESONIDE\FORMOTEROL FUMARATE DIHYDRATE
  21. ZAFIRLUKAST. [Concomitant]
     Active Substance: ZAFIRLUKAST
  22. COLCHICINE. [Concomitant]
     Active Substance: COLCHICINE
  23. GABAPENTIN. [Concomitant]
     Active Substance: GABAPENTIN
  24. HYDROCODONE BITARTRATE/PARACETAMOL [Concomitant]
  25. LORATADINE. [Concomitant]
     Active Substance: LORATADINE
  26. OMEPRAZOLE. [Concomitant]
     Active Substance: OMEPRAZOLE
  27. ASPIRIN. [Concomitant]
     Active Substance: ASPIRIN
  28. ESCITALOPRAM OXALATE. [Concomitant]
     Active Substance: ESCITALOPRAM OXALATE
  29. XANAX [Concomitant]
     Active Substance: ALPRAZOLAM
  30. PHENAZOPYRIDINE. [Concomitant]
     Active Substance: PHENAZOPYRIDINE

REACTIONS (1)
  - Renal disorder [Recovered/Resolved]

NARRATIVE: CASE EVENT DATE: 20141005
